FAERS Safety Report 6781587-0 (Version None)
Quarter: 2010Q2

REPORT INFORMATION
  Report Type: 
  Country: None (occurrence: None)
  Receive Date: 20100617
  Receipt Date: 20100617
  Transmission Date: 20101027
  Serious: Yes (Other)
  Sender: FDA-Public Use
  Company Number: None

PATIENT
  Age: 70 Year
  Sex: Male
  Weight: 106.1417 kg

DRUGS (1)
  1. GABAPENTIN [Suspect]
     Indication: MUSCLE SPASMS
     Dosage: 300 MG DOSE AT BEDTIME MOUTH
     Route: 048
     Dates: start: 20100519, end: 20100524

REACTIONS (3)
  - ASTHENIA [None]
  - DECREASED APPETITE [None]
  - DYSPNOEA [None]
